FAERS Safety Report 5085216-6 (Version None)
Quarter: 2006Q3

REPORT INFORMATION
  Report Type: 
  Country: None (occurrence: None)
  Receive Date: 20060731
  Receipt Date: 20051103
  Transmission Date: 20061208
  Serious: Yes (Life-Threatening, Hospitalization, Other)
  Sender: FDA-Public Use
  Company Number: 200511872BWH

PATIENT
  Age: 69 Year
  Sex: Male

DRUGS (1)
  1. AVELOX [Suspect]
     Indication: CHRONIC OBSTRUCTIVE PULMONARY DISEASE
     Dosage: 400 MG, ONCE, ORAL
     Route: 048
     Dates: start: 20050831

REACTIONS (5)
  - ANGIONEUROTIC OEDEMA [None]
  - CHEST PAIN [None]
  - SWELLING FACE [None]
  - SWOLLEN TONGUE [None]
  - VENTRICULAR EXTRASYSTOLES [None]
